FAERS Safety Report 4731198-3 (Version None)
Quarter: 2005Q3

REPORT INFORMATION
  Report Type: 
  Country: None (occurrence: None)
  Receive Date: 20050729
  Receipt Date: 20050721
  Transmission Date: 20060218
  Serious: Yes (Other)
  Sender: FDA-Public Use
  Company Number: 2005AP000393

PATIENT
  Age: 4 Year
  Sex: Female
  Weight: 15.4223 kg

DRUGS (1)
  1. OXYBUTYNIN CHLORIDE [Suspect]
     Indication: HYPERTONIC BLADDER
     Dosage: 5 MG, BID; PO
     Route: 048
     Dates: start: 20050427, end: 20050427

REACTIONS (2)
  - HALLUCINATION [None]
  - HEADACHE [None]
